FAERS Safety Report 8885691 (Version 1)
Quarter: 2012Q4

REPORT INFORMATION
  Report Type: 
  Country: US (occurrence: US)
  Receive Date: 20121101
  Receipt Date: 20121101
  Transmission Date: 20130627
  Serious: Yes (Other)
  Sender: FDA-Public Use
  Company Number: US-PFIZER INC-2012267617

PATIENT
  Age: 41 Year
  Sex: Female
  Weight: 103 kg

DRUGS (5)
  1. DILANTIN-125 [Suspect]
     Indication: SEIZURES
     Dosage: 10ml once in the morning and 12.5ml once at night
  2. DILANTIN-125 [Suspect]
     Dosage: UNK
  3. DILANTIN [Suspect]
     Indication: SEIZURES
     Dosage: UNK
  4. TOPAMAX [Concomitant]
     Dosage: 100 mg, 4x/day
  5. NYSTATIN [Concomitant]
     Dosage: UNK

REACTIONS (4)
  - Convulsion [Unknown]
  - Anticonvulsant drug level decreased [Unknown]
  - Amnesia [Unknown]
  - Drug hypersensitivity [Unknown]
